FAERS Safety Report 5575942-4 (Version None)
Quarter: 2007Q4

REPORT INFORMATION
  Report Type: 
  Country: None (occurrence: None)
  Receive Date: 20071130
  Receipt Date: 20070807
  Transmission Date: 20080405
  Serious: No
  Sender: FDA-Public Use
  Company Number: US200708001750

PATIENT
  Age: 52 Year
  Sex: Female

DRUGS (2)
  1. BYETTA [Suspect]
     Indication: TYPE 2 DIABETES MELLITUS
     Dosage: 5 UG, 2/D, SUBCUTANEOUS
     Route: 058
     Dates: start: 20070802
  2. METFORMIN HCL [Concomitant]

REACTIONS (6)
  - DEPRESSED MOOD [None]
  - DIARRHOEA [None]
  - DYSPEPSIA [None]
  - FEELING JITTERY [None]
  - HEADACHE [None]
  - NAUSEA [None]
